FAERS Safety Report 21908991 (Version 1)
Quarter: 2023Q1

REPORT INFORMATION
  Report Type: Spontaneous
  Country: US (occurrence: None)
  Receive Date: 20230124
  Receipt Date: 20230124
  Transmission Date: 20230418
  Serious: No
  Sender: FDA-Public Use
  Company Number: None

PATIENT
  Age: 20 Year
  Sex: Male
  Weight: 65.25 kg

DRUGS (6)
  1. IMIQUIMOD [Suspect]
     Active Substance: IMIQUIMOD
     Indication: Anogenital warts
     Dosage: OTHER QUANTITY : 1 PACKET;?OTHER FREQUENCY : AT BEDTIME 3 DAYS;?
     Route: 061
     Dates: start: 20230119
  2. VITAMINS [Concomitant]
     Active Substance: VITAMINS
  3. mineral pill [Concomitant]
  4. VITAMIN C [Concomitant]
     Active Substance: ASCORBIC ACID
  5. VITAMIN D [Concomitant]
     Active Substance: VITAMIN D NOS
  6. Active Hexose Correlated Compound pills [Concomitant]

REACTIONS (8)
  - Dizziness [None]
  - Asthenia [None]
  - Diarrhoea [None]
  - Fatigue [None]
  - Vomiting [None]
  - Back pain [None]
  - Headache [None]
  - Gastroenteritis viral [None]
